FAERS Safety Report 9772450 (Version 1)
Quarter: 2013Q4

REPORT INFORMATION
  Report Type: Report from Study
  Country: GB (occurrence: GB)
  Receive Date: 20131219
  Receipt Date: 20131219
  Transmission Date: 20140711
  Serious: Yes (Death, Other)
  Sender: FDA-Public Use
  Company Number: GB-CELGENEUS-167-50794-13121550

PATIENT
  Age: 65 Year
  Sex: Male

DRUGS (2)
  1. VIDAZA [Suspect]
     Indication: ACUTE MYELOID LEUKAEMIA
     Dosage: 160 MILLIGRAM/SQ. METER
     Route: 058
     Dates: start: 20130902
  2. VIDAZA [Suspect]
     Dosage: 159 MILLIGRAM/SQ. METER
     Route: 058
     Dates: start: 20131007, end: 20131015

REACTIONS (2)
  - Febrile neutropenia [Fatal]
  - Febrile neutropenia [Recovered/Resolved]
